FAERS Safety Report 7694514-9 (Version None)
Quarter: 2011Q3

REPORT INFORMATION
  Report Type: 
  Country: None (occurrence: None)
  Receive Date: 20110819
  Receipt Date: 20110811
  Transmission Date: 20111222
  Serious: Yes (Hospitalization)
  Sender: FDA-Public Use
  Company Number: PHEH2011US01032

PATIENT
  Age: 25 Year
  Sex: Male
  Weight: 59.41 kg

DRUGS (1)
  1. TOBI [Suspect]
     Dosage: 300 MG, BID (28 DAYS ON AND 28 DAYS OFF)
     Dates: start: 20110623

REACTIONS (2)
  - UPPER RESPIRATORY TRACT INFECTION [None]
  - CYSTIC FIBROSIS [None]
